FAERS Safety Report 14255341 (Version 1)
Quarter: 2017Q4

REPORT INFORMATION
  Report Type: Report from Study
  Country: FR (occurrence: FR)
  Receive Date: 20171206
  Receipt Date: 20171206
  Transmission Date: 20180321
  Serious: Yes (Hospitalization, Other)
  Sender: FDA-Public Use
  Company Number: FR-ROCHE-2031030

PATIENT
  Age: 26 Year
  Sex: Female

DRUGS (1)
  1. RITUXIMAB. [Suspect]
     Active Substance: RITUXIMAB
     Indication: IMMUNE THROMBOCYTOPENIC PURPURA
     Route: 065
     Dates: start: 20100920

REACTIONS (6)
  - Haemorrhoidal haemorrhage [Recovered/Resolved]
  - Infection [Recovered/Resolved]
  - Orthodontic procedure [Recovered/Resolved]
  - Abortion spontaneous [Recovered/Resolved]
  - Caesarean section [Unknown]
  - Maternal exposure during pregnancy [Unknown]

NARRATIVE: CASE EVENT DATE: 201306
